FAERS Safety Report 7462713-7 (Version None)
Quarter: 2011Q2

REPORT INFORMATION
  Report Type: 
  Country: None (occurrence: None)
  Receive Date: 20110506
  Receipt Date: 20110429
  Transmission Date: 20111010
  Serious: Yes (Other)
  Sender: FDA-Public Use
  Company Number: PHHY2011NL36519

PATIENT
  Sex: Female
  Weight: 65 kg

DRUGS (4)
  1. NO TREATMENT RECEIVED [Suspect]
  2. DIOVAN [Suspect]
     Indication: HYPERTENSION
     Dosage: 80 MG, DAILY
  3. BETA BLOCKING AGENTS [Concomitant]
  4. DIURETICS [Concomitant]

REACTIONS (1)
  - DIABETES MELLITUS [None]
